FAERS Safety Report 25189941 (Version 1)
Quarter: 2025Q2

REPORT INFORMATION
  Report Type: Spontaneous
  Country: US (occurrence: US)
  Receive Date: 20250411
  Receipt Date: 20250411
  Transmission Date: 20250716
  Serious: No
  Sender: BRISTOL MYERS SQUIBB
  Company Number: US-BRISTOL-MYERS SQUIBB COMPANY-2025-054499

PATIENT
  Age: 72 Year
  Sex: Female

DRUGS (3)
  1. KRAZATI [Suspect]
     Active Substance: ADAGRASIB
     Indication: Product used for unknown indication
     Route: 048
  2. KRAZATI [Suspect]
     Active Substance: ADAGRASIB
     Route: 048
  3. KRAZATI [Suspect]
     Active Substance: ADAGRASIB
     Route: 048

REACTIONS (1)
  - Adverse event [Unknown]
